FAERS Safety Report 7890411-4 (Version None)
Quarter: 2011Q4

REPORT INFORMATION
  Report Type: 
  Country: None (occurrence: None)
  Receive Date: 20111103
  Receipt Date: 20110721
  Transmission Date: 20120403
  Serious: No
  Sender: FDA-Public Use
  Company Number: US-AMGEN-USASP2011037235

PATIENT
  Sex: Female

DRUGS (5)
  1. ENBREL [Suspect]
     Indication: RHEUMATOID ARTHRITIS
     Dosage: 25 MG, 2 TIMES/WK
     Dates: start: 20080101
  2. FOLIC ACID [Concomitant]
     Dosage: UNK
  3. CELEBREX [Concomitant]
     Dosage: UNK MG, UNK
  4. PREDNISONE [Concomitant]
     Dosage: UNK
  5. PLAQUENIL [Concomitant]
     Dosage: UNK

REACTIONS (1)
  - INFERTILITY [None]
